FAERS Safety Report 25079052 (Version 3)
Quarter: 2025Q2

REPORT INFORMATION
  Report Type: Spontaneous
  Country: RS (occurrence: RS)
  Receive Date: 20250314
  Receipt Date: 20250618
  Transmission Date: 20250717
  Serious: Yes (Other)
  Sender: ALEXION PHARMACEUTICALS
  Company Number: RS-ASTRAZENECA-202503BKN007215RS

PATIENT
  Age: 58 Year

DRUGS (3)
  1. LYNPARZA [Suspect]
     Active Substance: OLAPARIB
     Indication: Ovarian cancer
     Route: 065
  2. LYNPARZA [Suspect]
     Active Substance: OLAPARIB
     Dosage: 600 MILLIGRAM, QD
     Route: 065
  3. LYNPARZA [Suspect]
     Active Substance: OLAPARIB
     Dosage: 500 MILLIGRAM, QD
     Route: 065

REACTIONS (6)
  - Rhabdomyolysis [Unknown]
  - Myalgia [Recovered/Resolved]
  - Blood creatine phosphokinase increased [Recovered/Resolved]
  - Body temperature increased [Unknown]
  - Arthralgia [Unknown]
  - Symptom recurrence [Unknown]
